FAERS Safety Report 5382248-5 (Version None)
Quarter: 2007Q3

REPORT INFORMATION
  Report Type: 
  Country: None (occurrence: None)
  Receive Date: 20070709
  Receipt Date: 20070626
  Transmission Date: 20080115
  Serious: Yes (Life-Threatening)
  Sender: FDA-Public Use
  Company Number: IT-PFIZER INC-2007054825

PATIENT
  Sex: Female

DRUGS (3)
  1. VIRACEPT [Suspect]
     Indication: HIV TEST POSITIVE
     Route: 048
     Dates: start: 19990401, end: 20070619
  2. COMBIVIR [Concomitant]
     Dates: start: 19990401, end: 20070619
  3. TRUVADA [Concomitant]
     Dates: start: 20051001, end: 20070619

REACTIONS (1)
  - TRANSITIONAL CELL CARCINOMA [None]
